FAERS Safety Report 18665037 (Version 2)
Quarter: 2020Q4

REPORT INFORMATION
  Report Type: Spontaneous
  Country: US (occurrence: US)
  Receive Date: 20201225
  Receipt Date: 20201230
  Transmission Date: 20210114
  Serious: No
  Sender: FDA-Public Use
  Company Number: US-TORRENT-00010571

PATIENT
  Sex: Female
  Weight: 47 kg

DRUGS (2)
  1. LEVOTHYROXINE. [Concomitant]
     Active Substance: LEVOTHYROXINE
     Indication: THYROID DISORDER
     Dosage: UNKNOWN
  2. MONTELUKAST SODIUM IR TABLETS [Suspect]
     Active Substance: MONTELUKAST SODIUM
     Indication: ASTHMA
     Dosage: PILL IMPRINT -1081 ON ONE SIDE AND 10 GM ON THE OTHER SIDE (NDC: 13668-O81-90)
     Dates: start: 202010

REACTIONS (4)
  - Asthma [Unknown]
  - Wheezing [Unknown]
  - Drug ineffective [Unknown]
  - Cough [Recovered/Resolved]

NARRATIVE: CASE EVENT DATE: 2020
